FAERS Safety Report 16084418 (Version 1)
Quarter: 2019Q1

REPORT INFORMATION
  Report Type: Spontaneous
  Country: US (occurrence: US)
  Receive Date: 20190318
  Receipt Date: 20190318
  Transmission Date: 20190418
  Serious: No
  Sender: FDA-Public Use
  Company Number: US-LANTHEUS-LMI-2018-00485

PATIENT

DRUGS (1)
  1. FLUDEOXYGLUCOSE F-18. [Suspect]
     Active Substance: FLUDEOXYGLUCOSE F-18
     Indication: POSITRON EMISSION TOMOGRAM
     Dosage: UNK
     Route: 065
     Dates: start: 20180919

REACTIONS (2)
  - Drug ineffective [Unknown]
  - Product packaging issue [None]

NARRATIVE: CASE EVENT DATE: 20180919
